FAERS Safety Report 10957303 (Version 1)
Quarter: 2015Q1

REPORT INFORMATION
  Report Type: Spontaneous
  Country: US (occurrence: US)
  Receive Date: 20150326
  Receipt Date: 20150326
  Transmission Date: 20150721
  Serious: No
  Sender: FDA-Public Use
  Company Number: US-SA-2014SA176271

PATIENT
  Sex: Female

DRUGS (5)
  1. AUBAGIO [Suspect]
     Active Substance: TERIFLUNOMIDE
     Route: 048
  2. METHYLPREDNISOLONE. [Concomitant]
     Active Substance: METHYLPREDNISOLONE
  3. ACETYLCYSTEINE. [Concomitant]
     Active Substance: ACETYLCYSTEINE
  4. INOSITOL [Concomitant]
     Active Substance: INOSITOL
  5. COQ10 [Concomitant]
     Active Substance: UBIDECARENONE

REACTIONS (2)
  - Fatigue [Recovered/Resolved]
  - Psychomotor hyperactivity [Recovered/Resolved]
